FAERS Safety Report 7771263-X (Version None)
Quarter: 2011Q3

REPORT INFORMATION
  Report Type: 
  Country: None (occurrence: None)
  Receive Date: 20110922
  Receipt Date: 20110908
  Transmission Date: 20111222
  Serious: Yes (Hospitalization)
  Sender: FDA-Public Use
  Company Number: FR-JNJFOC-20110901473

PATIENT
  Age: 25 Year
  Sex: Female

DRUGS (9)
  1. TERCIAN [Suspect]
     Indication: SCHIZOPHRENIA
     Route: 048
     Dates: end: 20110728
  2. SULFARLEM [Suspect]
     Indication: PRODUCT USED FOR UNKNOWN INDICATION
     Route: 048
     Dates: end: 20110728
  3. IMOVANE [Suspect]
     Indication: PRODUCT USED FOR UNKNOWN INDICATION
     Route: 048
     Dates: end: 20110728
  4. TETRAZEPAM [Suspect]
     Indication: PRODUCT USED FOR UNKNOWN INDICATION
     Route: 048
     Dates: end: 20110728
  5. RISPERDAL [Suspect]
     Indication: SCHIZOPHRENIA
     Route: 048
     Dates: start: 20080101, end: 20110728
  6. ATARAX [Suspect]
     Indication: PRODUCT USED FOR UNKNOWN INDICATION
     Route: 048
     Dates: end: 20110728
  7. METOCLOPRAMIDE [Suspect]
     Indication: MIGRAINE
     Route: 048
     Dates: start: 20110706, end: 20110728
  8. LEXOMIL [Concomitant]
     Indication: PRODUCT USED FOR UNKNOWN INDICATION
     Route: 065
  9. FLURBIPROFEN [Suspect]
     Indication: PRODUCT USED FOR UNKNOWN INDICATION
     Route: 048
     Dates: start: 20110706, end: 20110716

REACTIONS (10)
  - VOMITING [None]
  - RENAL FAILURE ACUTE [None]
  - COMA [None]
  - OVERDOSE [None]
  - WEIGHT DECREASED [None]
  - MALAISE [None]
  - SYSTEMIC INFLAMMATORY RESPONSE SYNDROME [None]
  - ANAEMIA [None]
  - POLYDIPSIA [None]
  - PANCREATITIS [None]
